FAERS Safety Report 4674717-8 (Version None)
Quarter: 2005Q2

REPORT INFORMATION
  Report Type: 
  Country: None (occurrence: None)
  Receive Date: 20050526
  Receipt Date: 20050509
  Transmission Date: 20051028
  Serious: Yes (Hospitalization)
  Sender: FDA-Public Use
  Company Number: PHRM2005FR01461

PATIENT
  Sex: Female

DRUGS (7)
  1. ARACYTINE [Suspect]
     Indication: CHRONIC MYELOID LEUKAEMIA
     Route: 048
     Dates: start: 20021015, end: 20050403
  2. CIPROFLOXACIN [Suspect]
     Indication: SEPSIS
     Route: 042
     Dates: end: 20050410
  3. VFEND [Suspect]
     Indication: ASPERGILLOSIS
     Dosage: 400 MG DAILY
     Route: 042
     Dates: start: 20050407, end: 20050409
  4. AXEPIM [Suspect]
     Indication: SEPSIS
     Dosage: 4 G DAILY
     Route: 042
     Dates: start: 20050404, end: 20050410
  5. TARGOCID [Suspect]
     Indication: SEPSIS
     Dosage: 400 MG DAILY
     Route: 030
     Dates: start: 20050404
  6. AMBISOME [Concomitant]
     Indication: ASPERGILLOSIS
     Dates: start: 20050410
  7. GLEEVEC [Suspect]
     Indication: CHRONIC MYELOID LEUKAEMIA
     Route: 048
     Dates: start: 20020615, end: 20050403

REACTIONS (14)
  - ACUTE RESPIRATORY FAILURE [None]
  - ALANINE AMINOTRANSFERASE INCREASED [None]
  - ASPARTATE AMINOTRANSFERASE INCREASED [None]
  - ASPERGILLOSIS [None]
  - BLOOD ALKALINE PHOSPHATASE INCREASED [None]
  - BLOOD BILIRUBIN INCREASED [None]
  - FACTOR V DEFICIENCY [None]
  - GAMMA-GLUTAMYLTRANSFERASE INCREASED [None]
  - HEPATIC FAILURE [None]
  - LUNG DISORDER [None]
  - PROTHROMBIN TIME RATIO DECREASED [None]
  - PYREXIA [None]
  - SCIATICA [None]
  - SEPSIS [None]
